FAERS Safety Report 10254505 (Version 2)
Quarter: 2014Q3

REPORT INFORMATION
  Report Type: Spontaneous
  Country: US (occurrence: US)
  Receive Date: 20140624
  Receipt Date: 20140715
  Transmission Date: 20150326
  Serious: Yes (Death, Other)
  Sender: FDA-Public Use
  Company Number: US-ROCHE-1422351

PATIENT
  Age: 66 Year
  Sex: Male
  Weight: 78.09 kg

DRUGS (10)
  1. FLEXERIL [Concomitant]
     Active Substance: CYCLOBENZAPRINE HYDROCHLORIDE
     Dosage: 1-2 TABLETS IN AM AND 2 AT NIGHT
     Route: 048
  2. LOVENOX [Concomitant]
     Active Substance: ENOXAPARIN SODIUM
     Dosage: 120 MG/0.8ML SOLUTION
     Route: 058
  3. PREDNISONE. [Concomitant]
     Active Substance: PREDNISONE
     Dosage: 1-2 TABLETS WITH FOOD OR MILK
     Route: 048
     Dates: start: 20130709
  4. RITUXAN [Suspect]
     Active Substance: RITUXIMAB
     Indication: RHEUMATOID ARTHRITIS
     Dosage: 10MG/ML CONCENTRATION?MOST RECENT DOSE ON 03/APR/2014.
     Route: 042
     Dates: start: 201205
  5. NEXIUM [Concomitant]
     Active Substance: ESOMEPRAZOLE MAGNESIUM
     Dosage: DELAYED RELEASE CAPSULE
     Route: 048
  6. ARAVA [Concomitant]
     Active Substance: LEFLUNOMIDE
     Route: 048
  7. LISINOPRIL. [Concomitant]
     Active Substance: LISINOPRIL
     Route: 048
  8. ASPIR 81 [Concomitant]
     Dosage: DELAYED RELEASE TABLET
     Route: 048
  9. ULTRAM [Concomitant]
     Active Substance: TRAMADOL HYDROCHLORIDE
     Dosage: AS NEEDED
     Route: 048
  10. PREDNISONE. [Concomitant]
     Active Substance: PREDNISONE
     Dosage: 2 TABLETS FOR 3 DAYS, THEN 1 TABLETS FOR 2 DAYS AS NEEDED
     Route: 048

REACTIONS (3)
  - Renal failure [Unknown]
  - Staphylococcal infection [Unknown]
  - Infection [Fatal]

NARRATIVE: CASE EVENT DATE: 20140112
